FAERS Safety Report 10433843 (Version 2)
Quarter: 2014Q3

REPORT INFORMATION
  Report Type: Spontaneous
  Country: US (occurrence: US)
  Receive Date: 20140905
  Receipt Date: 20140905
  Transmission Date: 20150326
  Serious: Yes (Hospitalization)
  Sender: FDA-Public Use
  Company Number: US-GLAXOSMITHKLINE-A0744555A

PATIENT
  Sex: Male
  Weight: 128.6 kg

DRUGS (2)
  1. AVANDARYL [Suspect]
     Active Substance: GLIMEPIRIDE\ROSIGLITAZONE MALEATE
     Indication: DIABETES MELLITUS
     Route: 048
     Dates: start: 20070220
  2. AVANDIA [Suspect]
     Active Substance: ROSIGLITAZONE MALEATE
     Indication: TYPE 2 DIABETES MELLITUS
     Dosage: 8MG PER DAY
     Route: 048
     Dates: start: 20030912, end: 20050201

REACTIONS (6)
  - Cardiac failure congestive [Unknown]
  - Ischaemic cardiomyopathy [Unknown]
  - Mitral valve incompetence [Unknown]
  - Angina unstable [Unknown]
  - Myocardial infarction [Unknown]
  - Coronary artery disease [Unknown]
